FAERS Safety Report 24279689 (Version 1)
Quarter: 2024Q3

REPORT INFORMATION
  Report Type: Spontaneous
  Country: US (occurrence: US)
  Receive Date: 20240904
  Receipt Date: 20240904
  Transmission Date: 20241016
  Serious: No
  Sender: ROCHE
  Company Number: US-ROCHE-10000068983

PATIENT
  Age: 60 Year
  Sex: Female

DRUGS (1)
  1. AVASTIN [Suspect]
     Active Substance: BEVACIZUMAB
     Indication: Product used for unknown indication
     Route: 042

REACTIONS (7)
  - Arthralgia [Unknown]
  - Glossodynia [Unknown]
  - Constipation [Unknown]
  - Sinusitis [Unknown]
  - Asthenia [Unknown]
  - Sensory disturbance [Unknown]
  - Oral mucosal erythema [Unknown]
